FAERS Safety Report 17169034 (Version 1)
Quarter: 2019Q4

REPORT INFORMATION
  Report Type: Report from Study
  Country: BR (occurrence: BR)
  Receive Date: 20191218
  Receipt Date: 20191218
  Transmission Date: 20200122
  Serious: Yes (Other)
  Sender: FDA-Public Use
  Company Number: BR-ROCHE-1941071

PATIENT
  Sex: Female
  Weight: 80 kg

DRUGS (1)
  1. ACTEMRA [Suspect]
     Active Substance: TOCILIZUMAB
     Indication: RHEUMATOID ARTHRITIS
     Dosage: LATEST DOSE OF TOCILIZUMAB: 16/FEB/2017
     Route: 042
     Dates: start: 20161216

REACTIONS (4)
  - Diarrhoea [Recovering/Resolving]
  - Intestinal haemorrhage [Recovering/Resolving]
  - Colitis [Recovering/Resolving]
  - Hepatic steatosis [Not Recovered/Not Resolved]
